FAERS Safety Report 15074843 (Version 1)
Quarter: 2018Q2

REPORT INFORMATION
  Report Type: Spontaneous
  Country: US (occurrence: US)
  Receive Date: 20180627
  Receipt Date: 20180627
  Transmission Date: 20180711
  Serious: No
  Sender: FDA-Public Use
  Company Number: US-SAOL THERAPEUTICS-2017SAO01353

PATIENT
  Age: 33 Year
  Sex: Male

DRUGS (1)
  1. LIORESAL [Suspect]
     Active Substance: BACLOFEN
     Indication: MUSCLE SPASTICITY
     Dosage: 923 ?G, \DAY
     Route: 037
     Dates: start: 20170526

REACTIONS (4)
  - Clonus [Unknown]
  - Vomiting [Recovered/Resolved]
  - Implant site extravasation [Unknown]
  - Muscle spasticity [Unknown]

NARRATIVE: CASE EVENT DATE: 201708
